FAERS Safety Report 8994578 (Version 2)
Quarter: 2013Q1

REPORT INFORMATION
  Report Type: Spontaneous
  Country: US (occurrence: US)
  Receive Date: 20130102
  Receipt Date: 20130204
  Transmission Date: 20140127
  Serious: No
  Sender: FDA-Public Use
  Company Number: US-AMGEN-USASP2012079808

PATIENT
  Age: 53 Year
  Sex: Female

DRUGS (6)
  1. ENBREL [Suspect]
     Indication: PSORIASIS
     Dosage: UNK UNK, 2 TIMES/WK
     Dates: start: 201209, end: 201209
  2. HUMIRA [Suspect]
     Indication: PSORIASIS
     Dosage: 40 MG, Q2WK
     Route: 058
     Dates: start: 201206, end: 201208
  3. SIMVASTATIN [Concomitant]
     Indication: BLOOD CHOLESTEROL INCREASED
     Dosage: UNK UNK, QD
  4. MIMVEY [Concomitant]
     Dosage: UNK
  5. BUSPAR [Concomitant]
     Indication: ANXIETY
     Dosage: UNK UNK, DAILY
  6. ZOLPIDEM [Concomitant]
     Indication: SLEEP DISORDER
     Dosage: UNK UNK, DAILY

REACTIONS (10)
  - Rash [Not Recovered/Not Resolved]
  - Skin burning sensation [Unknown]
  - Skin exfoliation [Unknown]
  - Sneezing [Unknown]
  - Pruritus [Unknown]
  - Joint swelling [Unknown]
  - Vascular pain [Unknown]
  - Adverse reaction [Unknown]
  - Nasopharyngitis [Unknown]
  - Pustular psoriasis [Unknown]
